FAERS Safety Report 8376879-8 (Version None)
Quarter: 2012Q2

REPORT INFORMATION
  Report Type: 
  Country: None (occurrence: None)
  Receive Date: 20120522
  Receipt Date: 20120510
  Transmission Date: 20120825
  Serious: Yes (Hospitalization)
  Sender: FDA-Public Use
  Company Number: CA-JNJFOC-20120504396

PATIENT
  Sex: Female
  Weight: 64 kg

DRUGS (8)
  1. VITAMIN D [Concomitant]
     Route: 065
  2. CALCIUM [Concomitant]
     Route: 065
  3. PREDNISONE TAB [Concomitant]
     Route: 065
  4. WARFARIN SODIUM [Concomitant]
     Route: 065
  5. MULTI-VITAMINS [Concomitant]
     Route: 065
  6. HYDROMORPH [Concomitant]
     Route: 065
  7. REMICADE [Suspect]
     Indication: CROHN'S DISEASE
     Route: 042
     Dates: start: 20111104
  8. EYE DROPS [Concomitant]
     Indication: GLAUCOMA
     Route: 065

REACTIONS (1)
  - HIP FRACTURE [None]
